FAERS Safety Report 13521867 (Version 3)
Quarter: 2017Q2

REPORT INFORMATION
  Report Type: Report from Study
  Country: US (occurrence: US)
  Receive Date: 20170508
  Receipt Date: 20170608
  Transmission Date: 20170830
  Serious: Yes (Hospitalization, Other)
  Sender: FDA-Public Use
  Company Number: US-ASTRAZENECA-2017SE46759

PATIENT
  Age: 57 Year
  Sex: Male
  Weight: 75.3 kg

DRUGS (16)
  1. MEDI4736 [Suspect]
     Active Substance: DURVALUMAB
     Indication: NON-SMALL CELL LUNG CANCER
     Route: 042
     Dates: start: 20170405
  2. HYDROCORTISONE. [Concomitant]
     Active Substance: HYDROCORTISONE
     Dates: start: 2011
  3. OXYCODONE [Concomitant]
     Active Substance: OXYCODONE
     Route: 048
     Dates: start: 2011
  4. MEDI9447 [Suspect]
     Active Substance: OLECLUMAB
     Indication: COLORECTAL CANCER
     Route: 042
     Dates: start: 20170405
  5. EMLA [Concomitant]
     Active Substance: LIDOCAINE\PRILOCAINE
     Route: 048
     Dates: start: 2011
  6. MEDI4736 [Suspect]
     Active Substance: DURVALUMAB
     Indication: COLORECTAL CANCER
     Route: 042
     Dates: start: 20170405
  7. NORVASE [Concomitant]
     Route: 048
     Dates: start: 2011
  8. TYLENOL [Concomitant]
     Active Substance: ACETAMINOPHEN
     Route: 048
     Dates: start: 2011
  9. MORPHINE [Concomitant]
     Active Substance: MORPHINE
     Route: 048
     Dates: start: 20170322
  10. ZANTAC [Concomitant]
     Active Substance: RANITIDINE HYDROCHLORIDE
     Route: 048
     Dates: start: 2011
  11. NAPROXEN. [Concomitant]
     Active Substance: NAPROXEN
     Route: 048
     Dates: start: 2011
  12. MULTIVITAMIN [Concomitant]
     Active Substance: VITAMINS
     Route: 048
     Dates: start: 2011
  13. MEDI4736 [Suspect]
     Active Substance: DURVALUMAB
     Indication: ADENOCARCINOMA PANCREAS
     Route: 042
     Dates: start: 20170405
  14. MEDI9447 [Suspect]
     Active Substance: OLECLUMAB
     Indication: NON-SMALL CELL LUNG CANCER
     Route: 042
     Dates: start: 20170405
  15. MEDI9447 [Suspect]
     Active Substance: OLECLUMAB
     Indication: ADENOCARCINOMA PANCREAS
     Route: 042
     Dates: start: 20170405
  16. LISINOPRIL. [Concomitant]
     Active Substance: LISINOPRIL
     Route: 048
     Dates: start: 2011

REACTIONS (2)
  - Tumour pain [Not Recovered/Not Resolved]
  - Hepatic function abnormal [Not Recovered/Not Resolved]

NARRATIVE: CASE EVENT DATE: 20170501
